FAERS Safety Report 16017394 (Version 1)
Quarter: 2019Q1

REPORT INFORMATION
  Report Type: Spontaneous
  Country: ES (occurrence: ES)
  Receive Date: 20190228
  Receipt Date: 20190228
  Transmission Date: 20190418
  Serious: Yes (Other)
  Sender: FDA-Public Use
  Company Number: ES-PFIZER INC-2019071120

PATIENT
  Age: 80 Year
  Sex: Female

DRUGS (3)
  1. MEROPENEM. [Suspect]
     Active Substance: MEROPENEM
     Indication: CELLULITIS ORBITAL
     Dosage: 500 MG, 2X/DAY (EVERY 12 HOURS)
     Route: 042
  2. LINEZOLID. [Suspect]
     Active Substance: LINEZOLID
     Indication: CELLULITIS ORBITAL
     Dosage: 600 MG, 2X/DAY (EVERY 12 HOURS)
     Route: 042
  3. DEXAMETHASONE\GENTAMICIN (NARRATIVE) [Suspect]
     Active Substance: DEXAMETHASONE\GENTAMICIN
     Indication: EYE SWELLING
     Dosage: UNK UNK, 3X/DAY
     Route: 047

REACTIONS (8)
  - Condition aggravated [Recovering/Resolving]
  - Staphylococcal infection [None]
  - Skin graft [None]
  - Cellulitis orbital [Recovering/Resolving]
  - Erythema [None]
  - Soft tissue necrosis [None]
  - Blepharospasm [None]
  - Skin graft failure [None]
